FAERS Safety Report 17688226 (Version 1)
Quarter: 2020Q2

REPORT INFORMATION
  Report Type: Spontaneous
  Country: US (occurrence: US)
  Receive Date: 20200420
  Receipt Date: 20200420
  Transmission Date: 20200714
  Serious: No
  Sender: FDA-Public Use
  Company Number: None

PATIENT
  Age: 71 Year
  Sex: Female
  Weight: 37.53 kg

DRUGS (22)
  1. LOSARTAN. [Concomitant]
     Active Substance: LOSARTAN
  2. FAMOTIDINE. [Concomitant]
     Active Substance: FAMOTIDINE
  3. CINACALCET. [Concomitant]
     Active Substance: CINACALCET
  4. CEFDINIR. [Concomitant]
     Active Substance: CEFDINIR
  5. ONDANSETRON [Concomitant]
     Active Substance: ONDANSETRON
  6. LOMOTIL [Concomitant]
     Active Substance: ATROPINE SULFATE\DIPHENOXYLATE HYDROCHLORIDE
  7. PROCHLORPERAZINE. [Concomitant]
     Active Substance: PROCHLORPERAZINE
  8. ALPRAZOLAM. [Concomitant]
     Active Substance: ALPRAZOLAM
  9. VICODIN [Concomitant]
     Active Substance: ACETAMINOPHEN\HYDROCODONE BITARTRATE
  10. BRAFTOVI [Suspect]
     Active Substance: ENCORAFENIB
     Indication: ADENOCARCINOMA OF COLON
     Route: 048
     Dates: start: 20200320, end: 20200420
  11. PROCRIT [Concomitant]
     Active Substance: ERYTHROPOIETIN
  12. PROLIA [Concomitant]
     Active Substance: DENOSUMAB
  13. LIDOCAINE - PRILOCAINE [Concomitant]
  14. MINOCYCLINE [Concomitant]
     Active Substance: MINOCYCLINE HYDROCHLORIDE
  15. EPOGEN [Concomitant]
     Active Substance: ERYTHROPOIETIN
  16. GABAPENTIN. [Concomitant]
     Active Substance: GABAPENTIN
  17. ACETAMINOPHEN. [Concomitant]
     Active Substance: ACETAMINOPHEN
  18. PREDNISONE. [Concomitant]
     Active Substance: PREDNISONE
  19. OLOPATADINE. [Concomitant]
     Active Substance: OLOPATADINE
  20. METHENAMINE [Concomitant]
     Active Substance: METHENAMINE
  21. ATENOLOL. [Concomitant]
     Active Substance: ATENOLOL
  22. AMLODIPINE [Concomitant]
     Active Substance: AMLODIPINE BESYLATE

REACTIONS (1)
  - Death [None]

NARRATIVE: CASE EVENT DATE: 20200420
